FAERS Safety Report 8835109 (Version 1)
Quarter: 2012Q4

REPORT INFORMATION
  Report Type: 
  Country: BR (occurrence: BR)
  Receive Date: 20121011
  Receipt Date: 20121011
  Transmission Date: 20130627
  Serious: Yes (Other)
  Sender: FDA-Public Use
  Company Number: BR-SANOFI-AVENTIS-2012SA073466

PATIENT
  Age: 85 Year
  Sex: Male
  Weight: 88 kg

DRUGS (7)
  1. STILNOX [Suspect]
     Indication: SLEEP DISORDER
     Route: 048
  2. FENERGAN [Concomitant]
     Indication: SLEEP DISORDER
     Route: 048
  3. TRAZODONE HYDROCHLORIDE [Concomitant]
     Indication: SLEEP DISORDER
     Route: 048
  4. LORAZEPAM [Concomitant]
     Indication: SLEEP DISORDER
     Route: 048
  5. RIVOTRIL [Concomitant]
     Indication: SLEEP DISORDER
     Route: 048
  6. MIRTAZAPINE [Concomitant]
     Indication: DEPRESSION
     Route: 048
  7. VENLAFAXINE [Concomitant]
     Indication: DEPRESSION
     Dosage: strength: 150mg
     Route: 048

REACTIONS (3)
  - Eye haemorrhage [Unknown]
  - Blood pressure increased [Unknown]
  - Drug ineffective [Unknown]
